FAERS Safety Report 4601697-3 (Version None)
Quarter: 2005Q1

REPORT INFORMATION
  Report Type: 
  Country: None (occurrence: None)
  Receive Date: 20050131
  Receipt Date: 20041018
  Transmission Date: 20050727
  Serious: No
  Sender: FDA-Public Use
  Company Number: 200416515US

PATIENT
  Age: 43 Year
  Sex: Female

DRUGS (9)
  1. KETEK [Suspect]
     Indication: SINUSITIS
     Dosage: ONCE
  2. METFORMIN HCL [Concomitant]
  3. GLIBENCLAMIDE (GLUCOVANCE) [Concomitant]
  4. LEXAPRO [Concomitant]
  5. ROSUVASTATIN (CRESTOR) HYDROCHLOROTHIAZIDE [Concomitant]
  6. CANDESARTAN CILEXETIL (ATACAND HCT) [Concomitant]
  7. ACETYLSALICYLIC ACID SRT [Concomitant]
  8. RABEPRAZOLE SODIUM (ACIPHEX) [Concomitant]
  9. CLARITHROMYCIN (BIAXIN) [Concomitant]

REACTIONS (2)
  - PUPILS UNEQUAL [None]
  - VISION BLURRED [None]
